FAERS Safety Report 15665175 (Version 2)
Quarter: 2018Q4

REPORT INFORMATION
  Report Type: Spontaneous
  Country: US (occurrence: US)
  Receive Date: 20181128
  Receipt Date: 20181203
  Transmission Date: 20190205
  Serious: Yes (Hospitalization, Other)
  Sender: FDA-Public Use
  Company Number: US-PFIZER INC-2018485714

PATIENT
  Age: 22 Year
  Sex: Male

DRUGS (6)
  1. SULFAMETHOXAZOLE/TRIMETHOPRIM [Suspect]
     Active Substance: SULFAMETHOXAZOLE\TRIMETHOPRIM
     Dosage: UNK (RESTARTED)
     Route: 048
  2. PREDNISONE. [Concomitant]
     Active Substance: PREDNISONE
     Indication: PNEUMOCYSTIS JIROVECII PNEUMONIA
     Dosage: UNK
  3. SULFAMETHOXAZOLE/TRIMETHOPRIM [Suspect]
     Active Substance: SULFAMETHOXAZOLE\TRIMETHOPRIM
     Indication: PNEUMOCYSTIS JIROVECII PNEUMONIA
     Dosage: 2 DF, 4X/DAY (TWO DS TABLETS FOUR TIMES DAILY)
     Route: 048
  4. AMOXICILLIN. [Concomitant]
     Active Substance: AMOXICILLIN
     Indication: PNEUMOCYSTIS JIROVECII PNEUMONIA
     Dosage: UNK
  5. SULFAMETHOXAZOLE/TRIMETHOPRIM [Suspect]
     Active Substance: SULFAMETHOXAZOLE\TRIMETHOPRIM
     Indication: PROPHYLAXIS
     Dosage: UNK (LOWERED TO 1 DS TABLET DAILY)
     Route: 048
  6. ZIDOVUDINE. [Concomitant]
     Active Substance: ZIDOVUDINE
     Indication: PNEUMOCYSTIS JIROVECII PNEUMONIA
     Dosage: 500 MG, DAILY

REACTIONS (14)
  - Conjunctivitis [Recovered/Resolved]
  - Shock [Recovering/Resolving]
  - Hypotension [Recovering/Resolving]
  - Rash erythematous [Recovered/Resolved]
  - Conjunctival oedema [Recovered/Resolved]
  - Hepatic enzyme increased [Recovering/Resolving]
  - Abdominal discomfort [Unknown]
  - Periorbital oedema [Recovered/Resolved]
  - Treatment noncompliance [Unknown]
  - Dyspepsia [Unknown]
  - Pyrexia [Recovering/Resolving]
  - Acute kidney injury [Recovering/Resolving]
  - Arthralgia [Recovered/Resolved]
  - Muscle spasms [Unknown]
